FAERS Safety Report 15333283 (Version 1)
Quarter: 2018Q3

REPORT INFORMATION
  Report Type: Spontaneous
  Country: US (occurrence: US)
  Receive Date: 20180824
  Receipt Date: 20180824
  Transmission Date: 20181010
  Serious: Yes (Disabling)
  Sender: FDA-Public Use
  Company Number: None

PATIENT
  Sex: Male

DRUGS (1)
  1. OPDIVO [Suspect]
     Active Substance: NIVOLUMAB
     Indication: NEOPLASM MALIGNANT
     Dosage: EVERY THREE WEEKS, THEN EVERY FOUR WEEKS BY IV ?BY IV AT THE HOSPITAL
     Dates: start: 20180327, end: 20180814

REACTIONS (3)
  - Vision blurred [None]
  - Loss of personal independence in daily activities [None]
  - Condition aggravated [None]

NARRATIVE: CASE EVENT DATE: 20180327
